FAERS Safety Report 21596287 (Version 2)
Quarter: 2022Q4

REPORT INFORMATION
  Report Type: Spontaneous
  Country: ZA (occurrence: ZA)
  Receive Date: 20221115
  Receipt Date: 20221227
  Transmission Date: 20230112
  Serious: Yes (Hospitalization, Other)
  Sender: FDA-Public Use
  Company Number: ZA-002147023-NVSC2022ZA254820

PATIENT
  Sex: Male

DRUGS (6)
  1. BISOPROLOL [Suspect]
     Active Substance: BISOPROLOL
     Indication: Cardiac failure
     Dosage: 1.25 MG, QD
     Route: 065
     Dates: end: 20221020
  2. BISOPROLOL [Suspect]
     Active Substance: BISOPROLOL
     Dosage: 2.5 MG, QD
     Route: 048
  3. SPIRONOLACTONE [Suspect]
     Active Substance: SPIRONOLACTONE
     Indication: Product used for unknown indication
     Dosage: 12.5 MG, QD
     Route: 048
  4. FUROSEMIDE [Suspect]
     Active Substance: FUROSEMIDE
     Indication: Product used for unknown indication
     Dosage: 20 MG, QD
     Route: 065
  5. COLCHICINE [Concomitant]
     Active Substance: COLCHICINE
     Indication: Product used for unknown indication
     Dosage: 0.5 MG
     Route: 065
  6. DAPAGLIFLOZIN [Concomitant]
     Active Substance: DAPAGLIFLOZIN
     Indication: Product used for unknown indication
     Dosage: 10 MG, QD
     Route: 065

REACTIONS (9)
  - Chest pain [Unknown]
  - Arrhythmia [Unknown]
  - Ejection fraction decreased [Unknown]
  - Cardiac failure chronic [Unknown]
  - Dyspnoea [Unknown]
  - Fatigue [Unknown]
  - Oedema peripheral [Unknown]
  - N-terminal prohormone brain natriuretic peptide increased [Unknown]
  - Drug intolerance [Unknown]

NARRATIVE: CASE EVENT DATE: 20221020
